FAERS Safety Report 7075693-3 (Version None)
Quarter: 2010Q4

REPORT INFORMATION
  Report Type: 
  Country: None (occurrence: None)
  Receive Date: 20101031
  Receipt Date: 20101025
  Transmission Date: 20110411
  Serious: Yes (Hospitalization)
  Sender: FDA-Public Use
  Company Number: PHFR2010IE01643

PATIENT
  Sex: Male

DRUGS (1)
  1. CLOZARIL [Suspect]
     Indication: SCHIZOPHRENIA
     Dosage: 250MG DAILY
     Route: 048
     Dates: start: 20100427

REACTIONS (3)
  - DRUG LEVEL ABOVE THERAPEUTIC [None]
  - PLATELET COUNT DECREASED [None]
  - PSYCHIATRIC SYMPTOM [None]
